FAERS Safety Report 26098926 (Version 3)
Quarter: 2025Q4

REPORT INFORMATION
  Report Type: Spontaneous
  Country: JP (occurrence: JP)
  Receive Date: 20251127
  Receipt Date: 20251205
  Transmission Date: 20260118
  Serious: Yes (Hospitalization, Other)
  Sender: JOHNSON AND JOHNSON
  Company Number: JP-JNJFOC-20251167407

PATIENT
  Age: 80 Year
  Sex: Female

DRUGS (10)
  1. OPSUMIT [Suspect]
     Active Substance: MACITENTAN
     Indication: Pulmonary arterial hypertension
     Route: 048
     Dates: start: 202103
  2. UPTRAVI [Suspect]
     Active Substance: SELEXIPAG
     Indication: Pulmonary arterial hypertension
     Route: 048
     Dates: start: 2021
  3. METHOTREXATE [Concomitant]
     Active Substance: METHOTREXATE
     Indication: Rheumatoid arthritis
     Dosage: DOSE UNKNOWN
     Route: 065
  4. TOCILIZUMAB [Concomitant]
     Active Substance: TOCILIZUMAB
     Indication: Product used for unknown indication
     Dosage: DOSE UNKNOWN
     Route: 065
     Dates: start: 202103
  5. RIOCIGUAT [Concomitant]
     Active Substance: RIOCIGUAT
     Indication: Pulmonary arterial hypertension
     Route: 065
     Dates: start: 202112
  6. RIOCIGUAT [Concomitant]
     Active Substance: RIOCIGUAT
     Route: 065
     Dates: start: 202205
  7. RIOCIGUAT [Concomitant]
     Active Substance: RIOCIGUAT
     Dosage: DOSE UNKNOWN, GRADUALLY INCREASED
     Route: 065
  8. TREPROSTINIL [Concomitant]
     Active Substance: TREPROSTINIL
     Indication: Product used for unknown indication
     Dosage: DOSE UNKNOWN
     Route: 055
     Dates: start: 2024, end: 2024
  9. TREPROSTINIL [Concomitant]
     Active Substance: TREPROSTINIL
     Dosage: DOSE UNKNOWN, GRADUALLY INCREASED
     Route: 055
     Dates: start: 2024, end: 2024
  10. TREPROSTINIL [Concomitant]
     Active Substance: TREPROSTINIL
     Dosage: DOSE UNKNOWN
     Route: 055
     Dates: start: 2024, end: 202412

REACTIONS (6)
  - Transvalvular pressure gradient abnormal [Unknown]
  - Coronary artery stenosis [Unknown]
  - Compression fracture [Unknown]
  - Therapeutic product effect incomplete [Unknown]
  - Computerised tomogram abnormal [Unknown]
  - Obstructive airways disorder [Unknown]

NARRATIVE: CASE EVENT DATE: 20210101
